FAERS Safety Report 7409874-3 (Version None)
Quarter: 2011Q2

REPORT INFORMATION
  Report Type: 
  Country: None (occurrence: None)
  Receive Date: 20110412
  Receipt Date: 20110404
  Transmission Date: 20111010
  Serious: Yes (Hospitalization, Other)
  Sender: FDA-Public Use
  Company Number: US-AMGEN-USASP2011017714

PATIENT
  Age: 53 Year
  Sex: Female

DRUGS (1)
  1. ENBREL [Suspect]
     Indication: RHEUMATOID ARTHRITIS
     Dosage: 50 MG, QWK
     Dates: start: 20100322, end: 20110219

REACTIONS (8)
  - CHEST DISCOMFORT [None]
  - INJECTION SITE ERYTHEMA [None]
  - INJECTION SITE REACTION [None]
  - CORONARY ARTERY BYPASS [None]
  - DYSPEPSIA [None]
  - HYPERHIDROSIS [None]
  - SENSATION OF HEAVINESS [None]
  - INJECTION SITE WARMTH [None]
